FAERS Safety Report 7567951-0 (Version None)
Quarter: 2011Q2

REPORT INFORMATION
  Report Type: 
  Country: None (occurrence: None)
  Receive Date: 20110623
  Receipt Date: 20110617
  Transmission Date: 20111010
  Serious: Yes (Hospitalization)
  Sender: FDA-Public Use
  Company Number: FR-BRISTOL-MYERS SQUIBB COMPANY-15841596

PATIENT
  Age: 78 Year
  Sex: Female

DRUGS (6)
  1. IRBESARTAN + HYDROCHLOROTHIAZIDE [Concomitant]
  2. GLUCOPHAGE [Suspect]
     Indication: TYPE 2 DIABETES MELLITUS
     Dosage: 1DF:4.44MG/1
     Route: 048
     Dates: end: 20101227
  3. ATORVASTATIN CALCIUM [Concomitant]
  4. UVEDOSE [Concomitant]
  5. MIANSERIN [Concomitant]
  6. PANTOPRAZOLE [Concomitant]

REACTIONS (4)
  - RENAL FAILURE [None]
  - HYPERLACTACIDAEMIA [None]
  - MALNUTRITION [None]
  - BRONCHITIS [None]
